FAERS Safety Report 5340223-0 (Version None)
Quarter: 2007Q2

REPORT INFORMATION
  Report Type: 
  Country: None (occurrence: None)
  Receive Date: 20070405
  Receipt Date: 20070131
  Transmission Date: 20071010
  Serious: No
  Sender: FDA-Public Use
  Company Number: US200701003245

PATIENT
  Age: 55 Year
  Sex: Female

DRUGS (7)
  1. CYMBALTA [Suspect]
     Indication: FIBROMYALGIA
     Dosage: SEE IMAGE
     Dates: start: 20070101
  2. CYMBALTA [Suspect]
  3. FLEXERIL [Concomitant]
  4. REQUIP [Concomitant]
  5. IMURAN [Concomitant]
  6. DITROPAN [Concomitant]
  7. PRINZIDE [Concomitant]

REACTIONS (5)
  - CHEST PAIN [None]
  - DYSPEPSIA [None]
  - MUSCLE SPASMS [None]
  - NAUSEA [None]
  - PAIN [None]
